FAERS Safety Report 25532359 (Version 1)
Quarter: 2025Q3

REPORT INFORMATION
  Report Type: Spontaneous
  Country: GB (occurrence: GB)
  Receive Date: 20250709
  Receipt Date: 20250709
  Transmission Date: 20251021
  Serious: Yes (Other)
  Sender: AUROBINDO
  Company Number: GB-MHRA-TPP35898559C9963298YC1750670844141

PATIENT
  Age: 50 Year
  Sex: Male
  Weight: 108 kg

DRUGS (7)
  1. CELECOXIB [Suspect]
     Active Substance: CELECOXIB
     Indication: Ill-defined disorder
     Route: 065
     Dates: start: 20250612
  2. DICLOFENAC SODIUM [Concomitant]
     Active Substance: DICLOFENAC SODIUM
     Indication: Ill-defined disorder
     Dosage: 100 MILLIGRAM, ONCE A DAY [100MG OD (ONCE DAILY) PR (BY RECTUM).]
     Route: 065
     Dates: start: 20241213
  3. AMITRIPTYLINE HYDROCHLORIDE [Concomitant]
     Active Substance: AMITRIPTYLINE HYDROCHLORIDE
     Indication: Ill-defined disorder
     Dosage: 1 DOSAGE FORM, ONCE A DAY [TAKE ONE TABLET AT NIGHT]
     Route: 065
     Dates: start: 20241213
  4. BECLOMETHASONE\FORMOTEROL [Concomitant]
     Active Substance: BECLOMETHASONE\FORMOTEROL
     Indication: Ill-defined disorder
     Dosage: 2 DOSAGE FORM, TWO TIMES A DAY [INHALE TWO DOSES TWICE DAILY (INHALE QUICKLY AN...]
     Route: 065
     Dates: start: 20241213
  5. LANSOPRAZOLE [Concomitant]
     Active Substance: LANSOPRAZOLE
     Indication: Ill-defined disorder
     Dosage: 1 DOSAGE FORM, ONCE A DAY [TAKE ONE ONCE DAILY WHILST ON DICLOFENAC]
     Route: 065
     Dates: start: 20241213
  6. COCODAMOL [Concomitant]
     Active Substance: ACETAMINOPHEN\CODEINE PHOSPHATE
     Indication: Ill-defined disorder
     Dosage: UNK UNK, FOUR TIMES/DAY [1-2 TABLETS PO (BY MOUTH) QDS (FOUR TIMES A DAY...]
     Route: 048
     Dates: start: 20250611
  7. POLYETHYLENE GLYCOL 3350\POTASSIUM CHLORIDE\SODIUM BICARBONATE\SODIUM [Concomitant]
     Active Substance: POLYETHYLENE GLYCOL 3350\POTASSIUM CHLORIDE\SODIUM BICARBONATE\SODIUM CHLORIDE
     Indication: Ill-defined disorder
     Dosage: UNK UNK, ONCE A DAY [1-2 SACHETS OD (ONCE DAILY) PO (BY MOUTH).]
     Route: 048
     Dates: start: 20250611

REACTIONS (2)
  - Swollen tongue [Unknown]
  - Drooling [Unknown]
